FAERS Safety Report 23789770 (Version 2)
Quarter: 2024Q2

REPORT INFORMATION
  Report Type: Spontaneous
  Country: US (occurrence: US)
  Receive Date: 20240426
  Receipt Date: 20240517
  Transmission Date: 20240715
  Serious: Yes (Life-Threatening, Hospitalization)
  Sender: FDA-Public Use
  Company Number: US-INCYTE CORPORATION-2024IN004220

PATIENT

DRUGS (3)
  1. JAKAFI [Suspect]
     Active Substance: RUXOLITINIB
     Indication: Juvenile idiopathic arthritis
     Dosage: 40 MILLIGRAM, BID
     Route: 048
     Dates: start: 202401
  2. ILARIS [Interacting]
     Active Substance: CANAKINUMAB
     Indication: Product used for unknown indication
     Route: 065
  3. KINERET [Interacting]
     Active Substance: ANAKINRA
     Indication: Product used for unknown indication
     Route: 065

REACTIONS (6)
  - Ill-defined disorder [Unknown]
  - Drug interaction [Unknown]
  - Autoinflammatory disease [Unknown]
  - Product prescribing error [Unknown]
  - Off label use [Unknown]
  - Prescribed overdose [Unknown]

NARRATIVE: CASE EVENT DATE: 20240101
